FAERS Safety Report 10170869 (Version 1)
Quarter: 2014Q2

REPORT INFORMATION
  Report Type: Spontaneous
  Country: US (occurrence: US)
  Receive Date: 20140514
  Receipt Date: 20140514
  Transmission Date: 20141212
  Serious: Yes (Other)
  Sender: FDA-Public Use
  Company Number: US-TEVA-481149USA

PATIENT
  Sex: Female
  Weight: 63.11 kg

DRUGS (4)
  1. NICOTINIC ACID [Suspect]
  2. ZOLOFT [Suspect]
     Indication: DEPRESSION
  3. LIPITOR [Suspect]
     Indication: BLOOD CHOLESTEROL INCREASED
  4. NEURONTIN [Suspect]
     Indication: SPINAL COLUMN STENOSIS
     Dates: start: 2009

REACTIONS (5)
  - Blindness [Unknown]
  - Hypertension [Unknown]
  - Adverse event [Unknown]
  - Tinnitus [Unknown]
  - Blood cholesterol decreased [Unknown]
